FAERS Safety Report 7370157-1 (Version None)
Quarter: 2011Q1

REPORT INFORMATION
  Report Type: 
  Country: None (occurrence: None)
  Receive Date: 20110323
  Receipt Date: 20100503
  Transmission Date: 20110831
  Serious: No
  Sender: FDA-Public Use
  Company Number: US-ASTRAZENECA-2010SE16714

PATIENT
  Age: 80 Year
  Sex: Female

DRUGS (13)
  1. LISINOPRIL [Suspect]
     Route: 048
  2. ACIPHEX [Concomitant]
  3. CEFTIN [Concomitant]
  4. CODEINE [Concomitant]
  5. DILTIAZEM [Concomitant]
  6. CECLOR [Concomitant]
  7. ZITHROMAX [Concomitant]
  8. HYDRALAZINE HCL [Concomitant]
  9. HYTRIN [Concomitant]
  10. FUROSEMIDE [Concomitant]
  11. MINOXIDIL [Concomitant]
  12. E.E.S. [Concomitant]
  13. CATAPRES-TTS-1 [Concomitant]

REACTIONS (3)
  - GASTROOESOPHAGEAL REFLUX DISEASE [None]
  - BLOOD PRESSURE ABNORMAL [None]
  - COUGH [None]
